FAERS Safety Report 5692263-X (Version None)
Quarter: 2008Q2

REPORT INFORMATION
  Report Type: 
  Country: None (occurrence: None)
  Receive Date: 20080328
  Receipt Date: 20070806
  Transmission Date: 20081010
  Serious: Yes (Hospitalization)
  Sender: FDA-Public Use
  Company Number: PHEH2007US10851

PATIENT
  Sex: Female

DRUGS (1)
  1. VIVELLE-DOT [Suspect]
     Dosage: 0.05 MG/DAY, TRANSDERMAL
     Route: 062

REACTIONS (11)
  - ALOPECIA [None]
  - ASTHMA [None]
  - BREAST CYST [None]
  - DIZZINESS [None]
  - DRUG INTOLERANCE [None]
  - DYSPNOEA [None]
  - EYE DISORDER [None]
  - INCONTINENCE [None]
  - MEMORY IMPAIRMENT [None]
  - RASH [None]
  - TINNITUS [None]
